FAERS Safety Report 13141775 (Version 2)
Quarter: 2017Q1

REPORT INFORMATION
  Report Type: Spontaneous
  Country: US (occurrence: US)
  Receive Date: 20170123
  Receipt Date: 20170201
  Transmission Date: 20170428
  Serious: Yes (Death, Hospitalization, Other)
  Sender: FDA-Public Use
  Company Number: US-GLAXOSMITHKLINE-US2017008233

PATIENT
  Age: 84 Year
  Sex: Female

DRUGS (18)
  1. GABAPENTIN. [Concomitant]
     Active Substance: GABAPENTIN
  2. BREO ELLIPTA [Suspect]
     Active Substance: FLUTICASONE FUROATE\VILANTEROL TRIFENATATE
     Dosage: UNK, PRN
  3. COLACE [Concomitant]
     Active Substance: DOCUSATE SODIUM
  4. MUCINEX [Concomitant]
     Active Substance: GUAIFENESIN
  5. AMARYL [Concomitant]
     Active Substance: GLIMEPIRIDE
  6. CARDIZEM [Concomitant]
     Active Substance: DILTIAZEM HYDROCHLORIDE
  7. DILTIAZEM. [Concomitant]
     Active Substance: DILTIAZEM
  8. BROVANA [Concomitant]
     Active Substance: ARFORMOTEROL TARTRATE
  9. COMBIVENT [Concomitant]
     Active Substance: ALBUTEROL SULFATE\IPRATROPIUM BROMIDE
  10. CLONIDINE. [Concomitant]
     Active Substance: CLONIDINE
  11. COUMADIN [Concomitant]
     Active Substance: WARFARIN SODIUM
  12. BREO ELLIPTA [Suspect]
     Active Substance: FLUTICASONE FUROATE\VILANTEROL TRIFENATATE
     Indication: CHRONIC OBSTRUCTIVE PULMONARY DISEASE
     Dosage: 1 PUFF(S), QD
     Route: 055
     Dates: end: 20170117
  13. VITAMIN D [Concomitant]
     Active Substance: CHOLECALCIFEROL
  14. BETAPACE [Concomitant]
     Active Substance: SOTALOL HYDROCHLORIDE
  15. BREO ELLIPTA [Suspect]
     Active Substance: FLUTICASONE FUROATE\VILANTEROL TRIFENATATE
     Dosage: UNK, BID
  16. NOVOLOG [Concomitant]
     Active Substance: INSULIN ASPART
  17. PAXIL [Concomitant]
     Active Substance: PAROXETINE HYDROCHLORIDE
  18. BUSPAR [Concomitant]
     Active Substance: BUSPIRONE HYDROCHLORIDE

REACTIONS (5)
  - Death [Fatal]
  - Chronic obstructive pulmonary disease [Fatal]
  - Drug ineffective [Unknown]
  - Hospice care [Unknown]
  - Pneumonia [Fatal]

NARRATIVE: CASE EVENT DATE: 201612
